FAERS Safety Report 15256949 (Version 2)
Quarter: 2018Q3

REPORT INFORMATION
  Report Type: Report from Study
  Country: US (occurrence: US)
  Receive Date: 20180808
  Receipt Date: 20180829
  Transmission Date: 20181010
  Serious: Yes (Death, Other)
  Sender: FDA-Public Use
  Company Number: PHEH2018US032473

PATIENT
  Age: 75 Year

DRUGS (1)
  1. TYKERB [Suspect]
     Active Substance: LAPATINIB DITOSYLATE
     Indication: PRODUCT USED FOR UNKNOWN INDICATION
     Dosage: 100 MG, QD
     Route: 048
     Dates: start: 20180720, end: 20180725

REACTIONS (5)
  - Asthenia [Unknown]
  - Dysphagia [Unknown]
  - Cachexia [Unknown]
  - Death [Fatal]
  - Oesophageal carcinoma [Unknown]

NARRATIVE: CASE EVENT DATE: 20180802
